FAERS Safety Report 12623163 (Version 1)
Quarter: 2016Q3

REPORT INFORMATION
  Report Type: Spontaneous
  Country: GB (occurrence: GB)
  Receive Date: 20160804
  Receipt Date: 20160804
  Transmission Date: 20161109
  Serious: Yes (Hospitalization)
  Sender: FDA-Public Use
  Company Number: GB-JNJFOC-20160800339

PATIENT
  Age: 86 Year
  Sex: Female

DRUGS (5)
  1. XARELTO [Suspect]
     Active Substance: RIVAROXABAN
     Indication: ATRIAL FLUTTER
     Route: 048
     Dates: start: 20160131, end: 20160701
  2. BISOPROLOL [Concomitant]
     Active Substance: BISOPROLOL
     Route: 048
  3. CO AMILOZIDE [Concomitant]
     Route: 048
  4. KETOPROFEN. [Concomitant]
     Active Substance: KETOPROFEN
     Route: 061
  5. LERCANIDIPINE [Concomitant]
     Active Substance: LERCANIDIPINE
     Route: 048

REACTIONS (4)
  - Upper gastrointestinal haemorrhage [Recovered/Resolved]
  - Gastric ulcer [Unknown]
  - Iron deficiency [Unknown]
  - Anaemia [Unknown]
